FAERS Safety Report 6396524-0 (Version None)
Quarter: 2009Q4

REPORT INFORMATION
  Report Type: 
  Country: None (occurrence: None)
  Receive Date: 20091012
  Receipt Date: 20090928
  Transmission Date: 20100525
  Serious: Yes (Hospitalization)
  Sender: FDA-Public Use
  Company Number: US-JNJFOC-20090908801

PATIENT
  Age: 3 Year
  Sex: Female
  Weight: 15.42 kg

DRUGS (1)
  1. CHILDREN'S TYLENOL PLUS COLD AND ALLERGY BUBBLEGUM [Suspect]
     Indication: BACTERIAL INFECTION
     Route: 048

REACTIONS (2)
  - BACTERIAL INFECTION [None]
  - TRANSMISSION OF AN INFECTIOUS AGENT VIA A MEDICINAL PRODUCT [None]
